FAERS Safety Report 8600347-9 (Version None)
Quarter: 2012Q3

REPORT INFORMATION
  Report Type: 
  Country: None (occurrence: None)
  Receive Date: 20120817
  Receipt Date: 20120813
  Transmission Date: 20120928
  Serious: No
  Sender: FDA-Public Use
  Company Number: US-PFIZER INC-2012135540

PATIENT
  Age: 43 Year
  Sex: Female
  Weight: 78.005 kg

DRUGS (20)
  1. LORTAB [Suspect]
     Indication: ARTHRITIS
  2. LORTAB [Suspect]
     Indication: PAIN
  3. RANITIDINE [Concomitant]
     Indication: GASTRIC DISORDER
     Dosage: 150 MG, 3X/DAY
  4. TIZANIDINE [Concomitant]
  5. LORTAB [Suspect]
     Indication: SPONDYLITIS
  6. KLONOPIN [Suspect]
     Indication: STRESS
     Dosage: 1MG, 1/2 TO 1 TABLET, 3 TIMES A DAY
     Route: 048
  7. LORTAB [Suspect]
     Indication: FIBROMYALGIA
     Dosage: 10-500 MG, TAKE 1-2 TABLETS EVERY 6-8 HOURS AS NEEDED
     Route: 048
     Dates: start: 20120608
  8. TIZANIDINE [Concomitant]
     Indication: ARTHRITIS
  9. CITALOPRAM [Concomitant]
     Indication: ANXIETY
  10. ZANTAC [Concomitant]
     Indication: GASTROOESOPHAGEAL REFLUX DISEASE
     Dosage: 150 MG, 2X/DAY
     Dates: start: 20110304
  11. CLONAZEPAM [Suspect]
     Indication: ANXIETY
     Dosage: 1 MG, 3X/DAY (1/2-1 PRN)
     Route: 048
     Dates: start: 20111111
  12. LORATADINE [Concomitant]
     Dosage: 10 MG, EVERY MORNING
     Route: 048
     Dates: start: 20120128
  13. HYDROCHLOROTHIAZIDE [Concomitant]
     Indication: SWELLING
     Dosage: 25 MG, 1/2-1 EVERY MORNING AS NEEDED FOR LE SWELLING
     Route: 048
     Dates: start: 20120128
  14. TIZANIDINE [Concomitant]
     Indication: SPONDYLITIS
     Dosage: 4 MG, 2X/DAY (UP TO 2 TABLETS AT BEDTIME IF NEEDED)
     Route: 048
     Dates: start: 20120507
  15. CITALOPRAM [Concomitant]
     Indication: DEPRESSION
     Dosage: 40 MG, (ONE TABLET ONCE A DAY AT BEDTIME)
     Route: 048
     Dates: start: 20110304
  16. LYRICA [Suspect]
     Indication: FIBROMYALGIA
     Dosage: 150 MG, 3X/DAY
     Route: 048
     Dates: start: 20110304, end: 20120501
  17. KLONOPIN [Suspect]
     Indication: ANXIETY
  18. TIZANIDINE [Concomitant]
     Indication: MUSCLE SPASMS
  19. RANITIDINE [Concomitant]
     Dosage: 150 MG, 2X/DAY
     Dates: start: 20120320
  20. CLARITIN [Concomitant]
     Indication: HYPERSENSITIVITY
     Dosage: 10 MG, DAILY
     Dates: start: 20110304

REACTIONS (11)
  - PAIN [None]
  - ANXIETY [None]
  - DIARRHOEA [None]
  - MALAISE [None]
  - VOMITING [None]
  - PAIN IN EXTREMITY [None]
  - FEELING ABNORMAL [None]
  - HEADACHE [None]
  - NERVOUSNESS [None]
  - WITHDRAWAL SYNDROME [None]
  - COLD SWEAT [None]
